FAERS Safety Report 16809997 (Version 1)
Quarter: 2019Q3

REPORT INFORMATION
  Report Type: Spontaneous
  Country: BR (occurrence: BR)
  Receive Date: 20190916
  Receipt Date: 20190916
  Transmission Date: 20191005
  Serious: Yes (Other)
  Sender: FDA-Public Use
  Company Number: BR-SA-2019SA254284

PATIENT
  Sex: Male

DRUGS (2)
  1. APIDRA [Suspect]
     Active Substance: INSULIN GLULISINE
     Dosage: 1 / 2
     Route: 063
  2. LANTUS [Suspect]
     Active Substance: INSULIN GLARGINE
     Dosage: 1 / 2 / 4
     Route: 063

REACTIONS (2)
  - Exposure via breast milk [Unknown]
  - Umbilical cord occlusion [Unknown]
